FAERS Safety Report 7501094-7 (Version None)
Quarter: 2011Q2

REPORT INFORMATION
  Report Type: 
  Country: None (occurrence: None)
  Receive Date: 20110524
  Receipt Date: 20110517
  Transmission Date: 20111010
  Serious: Yes (Other)
  Sender: FDA-Public Use
  Company Number: US-PFIZER INC-2008038436

PATIENT
  Sex: Female
  Weight: 83 kg

DRUGS (10)
  1. CHANTIX [Suspect]
     Dosage: 1 MG, 2X/DAY
     Route: 048
     Dates: start: 20071101, end: 20071101
  2. CHANTIX [Suspect]
     Indication: SMOKING CESSATION THERAPY
     Dosage: 0.5 MG, 1X/DAY
     Route: 048
     Dates: start: 20071101, end: 20071101
  3. CHANTIX [Suspect]
     Dosage: 0.5 MG, 2X/DAY
     Route: 048
     Dates: start: 20071101, end: 20071101
  4. KLONOPIN [Concomitant]
     Indication: STRESS
     Dosage: 1 MG, 2X/DAY
     Route: 048
  5. CHANTIX [Suspect]
     Dosage: 1 MG, 2X/DAY
     Route: 048
     Dates: start: 20080101, end: 20080601
  6. CHANTIX [Suspect]
     Dosage: 0.5 MG, 1X/DAY
     Route: 048
     Dates: start: 20080801, end: 20080101
  7. CHANTIX [Suspect]
     Dosage: 1 MG, 1X/DAY
     Route: 048
     Dates: start: 20080301, end: 20080401
  8. CHANTIX [Suspect]
     Dosage: 0.5 MG, 1X/DAY
     Route: 048
     Dates: start: 20100901
  9. ELAVIL [Concomitant]
  10. AVONEX [Concomitant]
     Indication: MULTIPLE SCLEROSIS
     Dosage: UNK

REACTIONS (9)
  - BLOOD PRESSURE INCREASED [None]
  - INCORRECT DOSE ADMINISTERED [None]
  - LOSS OF CONSCIOUSNESS [None]
  - IMPAIRED DRIVING ABILITY [None]
  - BALANCE DISORDER [None]
  - GAIT DISTURBANCE [None]
  - PRESYNCOPE [None]
  - DIABETES MELLITUS [None]
  - WEIGHT INCREASED [None]
